FAERS Safety Report 8477798-9 (Version None)
Quarter: 2012Q2

REPORT INFORMATION
  Report Type: 
  Country: None (occurrence: None)
  Receive Date: 20120629
  Receipt Date: 20120622
  Transmission Date: 20120825
  Serious: Yes (Other)
  Sender: FDA-Public Use
  Company Number: US-BAYER-2012-015842

PATIENT
  Age: 42 Year
  Sex: Female
  Weight: 61.224 kg

DRUGS (3)
  1. DROSPIRENONE AND ETHINYL ESTRADIOL [Suspect]
     Dosage: UNK
     Dates: start: 20070401, end: 20091101
  2. YASMIN [Suspect]
     Dosage: UNK
     Dates: start: 20070401, end: 20091101
  3. IBUPROFEN [Concomitant]
     Dosage: UNK
     Dates: start: 20020101, end: 20120101

REACTIONS (4)
  - GALLBLADDER DISORDER [None]
  - CHOLECYSTITIS ACUTE [None]
  - PAIN [None]
  - INJURY [None]
